FAERS Safety Report 9041396 (Version 1)
Quarter: 2013Q1

REPORT INFORMATION
  Report Type: Spontaneous
  Country: US (occurrence: None)
  Receive Date: 20130128
  Receipt Date: 20130128
  Transmission Date: 20140127
  Serious: Yes (Life-Threatening, Hospitalization, Disabling, Other)
  Sender: FDA-Public Use
  Company Number: None

PATIENT
  Age: 35 Year
  Sex: Male
  Weight: 86.18 kg

DRUGS (1)
  1. LAMICTAL [Suspect]
     Indication: CONVULSION
     Dosage: 150 MG  2X DAILY  PO
     Route: 048
     Dates: start: 19981001, end: 20060501

REACTIONS (3)
  - Drug effect decreased [None]
  - Diabetic ketoacidosis [None]
  - Type 1 diabetes mellitus [None]
